FAERS Safety Report 6794072-7 (Version None)
Quarter: 2010Q2

REPORT INFORMATION
  Report Type: 
  Country: None (occurrence: None)
  Receive Date: 20100624
  Receipt Date: 20090910
  Transmission Date: 20101027
  Serious: No
  Sender: FDA-Public Use
  Company Number: US-PFIZER INC-2009257967

PATIENT
  Sex: Female
  Weight: 72.562 kg

DRUGS (2)
  1. RELPAX [Suspect]
     Indication: MIGRAINE
     Dosage: 40 MG, 1X/DAY
     Route: 048
     Dates: start: 20090401
  2. ULTRAM [Concomitant]
     Indication: BACK PAIN
     Dosage: 250 MG, 1X/DAY
     Route: 048

REACTIONS (1)
  - HEADACHE [None]
